FAERS Safety Report 16391288 (Version 3)
Quarter: 2019Q3

REPORT INFORMATION
  Report Type: Spontaneous
  Country: FR (occurrence: FR)
  Receive Date: 20190604
  Receipt Date: 20190821
  Transmission Date: 20191004
  Serious: Yes (Disabling)
  Sender: FDA-Public Use
  Company Number: PHHY2019FR110846

PATIENT
  Age: 68 Year
  Sex: Female
  Weight: 76 kg

DRUGS (5)
  1. ASPIRIN UPSA [Concomitant]
     Indication: PRODUCT USED FOR UNKNOWN INDICATION
     Dosage: 1000 MG, BID
     Route: 065
     Dates: start: 20190319, end: 20190324
  2. NERISONE [Concomitant]
     Active Substance: DIFLUCORTOLONE VALERATE
     Indication: OTITIS EXTERNA
     Dosage: UNK UNK, QD (ONE APPLICATION)
     Route: 065
     Dates: start: 20190319, end: 20190319
  3. FUCIDINE [Concomitant]
     Indication: OTITIS EXTERNA
     Dosage: 1 UNK, QD (ONE APPLICATION)
     Route: 065
     Dates: start: 20190319, end: 20190319
  4. APROVEL [Concomitant]
     Active Substance: IRBESARTAN
     Indication: PRODUCT USED FOR UNKNOWN INDICATION
     Dosage: UNK
     Route: 065
  5. CILOXADEX [Suspect]
     Active Substance: CIPROFLOXACIN HYDROCHLORIDE\DEXAMETHASONE
     Indication: OTITIS EXTERNA
     Dosage: 4 GTT, BID
     Route: 001
     Dates: start: 20190319, end: 20190324

REACTIONS (7)
  - Fasciitis [Recovering/Resolving]
  - Tendonitis [Recovering/Resolving]
  - Pain in extremity [Recovering/Resolving]
  - Arthropathy [Unknown]
  - Insomnia [Not Recovered/Not Resolved]
  - Gait disturbance [Unknown]
  - Depression [Unknown]

NARRATIVE: CASE EVENT DATE: 20190322
